FAERS Safety Report 9157512 (Version 2)
Quarter: 2013Q1

REPORT INFORMATION
  Report Type: Spontaneous
  Country: JP (occurrence: GR)
  Receive Date: 20130312
  Receipt Date: 20130319
  Transmission Date: 20140127
  Serious: Yes (Other)
  Sender: FDA-Public Use
  Company Number: PHHY2013GR022517

PATIENT
  Age: 72 Year
  Sex: Female

DRUGS (2)
  1. ACZ885 [Suspect]
     Indication: TUMOUR NECROSIS FACTOR RECEPTOR-ASSOCIATED PERIODIC SYNDROME
     Dosage: 150 MG, EVERY 8 WEEKS
     Route: 058
  2. CORTICOSTEROIDS [Concomitant]

REACTIONS (1)
  - Renal impairment [Unknown]
